FAERS Safety Report 7716681-0 (Version None)
Quarter: 2011Q3

REPORT INFORMATION
  Report Type: 
  Country: None (occurrence: None)
  Receive Date: 20110829
  Receipt Date: 20110822
  Transmission Date: 20111222
  Serious: Yes (Other)
  Sender: FDA-Public Use
  Company Number: CA-JNJFOC-20110506890

PATIENT
  Sex: Male

DRUGS (2)
  1. REMICADE [Suspect]
     Indication: CROHN'S DISEASE
     Dosage: 5MG/KG
     Route: 042
     Dates: start: 20090901
  2. REMICADE [Suspect]
     Dosage: 5MG/KG
     Route: 042

REACTIONS (2)
  - DENTAL CARIES [None]
  - SKIN CANCER [None]
